FAERS Safety Report 7429695-5 (Version None)
Quarter: 2011Q2

REPORT INFORMATION
  Report Type: 
  Country: None (occurrence: None)
  Receive Date: 20110421
  Receipt Date: 20110412
  Transmission Date: 20111010
  Serious: Yes (Other)
  Sender: FDA-Public Use
  Company Number: FI-JNJFOC-20110408953

PATIENT
  Age: 68 Year
  Sex: Female

DRUGS (11)
  1. PRIMASPAN [Suspect]
     Indication: PRODUCT USED FOR UNKNOWN INDICATION
     Route: 065
  2. ADURSAL [Concomitant]
     Route: 065
  3. CRESTOR [Concomitant]
     Route: 065
  4. DINIT [Concomitant]
     Route: 065
  5. SPESICOR [Concomitant]
     Route: 065
  6. VAGIFEN [Concomitant]
     Route: 065
  7. LYRICA [Suspect]
     Indication: NEURALGIA
     Route: 048
  8. NEXIUM [Concomitant]
     Route: 065
  9. VENTOLIN [Concomitant]
     Route: 065
  10. TRAMAL [Suspect]
     Indication: PRODUCT USED FOR UNKNOWN INDICATION
     Route: 065
  11. FLIXOTIDE [Concomitant]
     Route: 065

REACTIONS (6)
  - DRUG INEFFECTIVE [None]
  - DIZZINESS [None]
  - PHOTOPHOBIA [None]
  - DRY EYE [None]
  - FEELING ABNORMAL [None]
  - EYE HAEMORRHAGE [None]
